FAERS Safety Report 25959194 (Version 1)
Quarter: 2025Q4

REPORT INFORMATION
  Report Type: Other
  Country: US (occurrence: US)
  Receive Date: 20251025
  Receipt Date: 20251025
  Transmission Date: 20260118
  Serious: Yes (Life-Threatening, Hospitalization, Other)
  Sender: ANI
  Company Number: US-ANIPHARMA-030974

PATIENT
  Age: 62 Year
  Sex: Male

DRUGS (2)
  1. LORAZEPAM [Suspect]
     Active Substance: LORAZEPAM
     Indication: Anxiety
  2. LORAZEPAM [Suspect]
     Active Substance: LORAZEPAM
     Indication: Claustrophobia

REACTIONS (3)
  - Intentional self-injury [Unknown]
  - Acute psychosis [Unknown]
  - Delirium [Unknown]
